FAERS Safety Report 8485183-9 (Version None)
Quarter: 2012Q2

REPORT INFORMATION
  Report Type: 
  Country: None (occurrence: None)
  Receive Date: 20120625
  Receipt Date: 20120612
  Transmission Date: 20120825
  Serious: Yes (Other)
  Sender: FDA-Public Use
  Company Number: 2012SA035122

PATIENT
  Age: 17 Year
  Sex: Male
  Weight: 78 kg

DRUGS (1)
  1. ICY HOT MEDICATED SPRAY / UNKNOWN / UNKNOWN [Suspect]
     Indication: MYALGIA
     Dosage: ONCE, TIME TO ONSET: 1 DAY(S)
     Dates: start: 20120510, end: 20120511

REACTIONS (2)
  - THERMAL BURN [None]
  - SKIN DISCOLOURATION [None]
